FAERS Safety Report 15684045 (Version 1)
Quarter: 2018Q4

REPORT INFORMATION
  Report Type: Spontaneous
  Country: FR (occurrence: FR)
  Receive Date: 20181204
  Receipt Date: 20181204
  Transmission Date: 20190205
  Serious: Yes (Death)
  Sender: FDA-Public Use
  Company Number: FR-ACCORD-095048

PATIENT
  Age: 71 Year
  Sex: Male

DRUGS (1)
  1. BENDAMUSTINE/BENDAMUSTINE HYDROCHLORIDE [Suspect]
     Active Substance: BENDAMUSTINE HYDROCHLORIDE
     Indication: BLASTIC PLASMACYTOID DENDRITIC CELL NEOPLASIA
     Dosage: 100 MG/M2, QW3 (D1, D2) X 1 COURSE
     Route: 065

REACTIONS (3)
  - Treatment failure [Fatal]
  - Malignant neoplasm progression [Fatal]
  - Blastic plasmacytoid dendritic cell neoplasia [Fatal]
